FAERS Safety Report 7415022-6 (Version None)
Quarter: 2011Q2

REPORT INFORMATION
  Report Type: 
  Country: None (occurrence: None)
  Receive Date: 20110414
  Receipt Date: 20110405
  Transmission Date: 20111010
  Serious: Yes (Other)
  Sender: FDA-Public Use
  Company Number: GB-ASTRAZENECA-2011SE19119

PATIENT
  Age: 83 Year
  Sex: Female

DRUGS (5)
  1. BENDROFLUMETHIAZIDE [Concomitant]
  2. FUROSEMIDE [Concomitant]
     Dates: end: 20091230
  3. ALFACALCIDOL [Concomitant]
  4. OMEPRAZOLE [Suspect]
     Route: 048
     Dates: start: 20030101, end: 20091001
  5. AMLODIPINE [Concomitant]

REACTIONS (2)
  - HYPOCALCAEMIA [None]
  - HYPOMAGNESAEMIA [None]
